FAERS Safety Report 19129232 (Version 2)
Quarter: 2021Q2

REPORT INFORMATION
  Report Type: Spontaneous
  Country: PR (occurrence: PR)
  Receive Date: 20210413
  Receipt Date: 20210513
  Transmission Date: 20210717
  Serious: No
  Sender: FDA-Public Use
  Company Number: PR-BAYER-2021-121296

PATIENT
  Age: 73 Year
  Sex: Female

DRUGS (1)
  1. STIVARGA [Suspect]
     Active Substance: REGORAFENIB
     Indication: COLON CANCER
     Dosage: 160 MG DAILY FOR 21 DAYS, 7 DAYS OF REST
     Dates: start: 20210120

REACTIONS (7)
  - Peripheral swelling [Not Recovered/Not Resolved]
  - Discomfort [None]
  - Blister [Not Recovered/Not Resolved]
  - Inflammation [None]
  - Pain in extremity [None]
  - Incorrect product administration duration [None]
  - Erythema [Not Recovered/Not Resolved]
